FAERS Safety Report 17554017 (Version 1)
Quarter: 2020Q1

REPORT INFORMATION
  Report Type: Report from Study
  Country: KR (occurrence: KR)
  Receive Date: 20200318
  Receipt Date: 20200318
  Transmission Date: 20200409
  Serious: Yes (Hospitalization, Other)
  Sender: FDA-Public Use
  Company Number: KR-AMGEN-KORNI2020045291

PATIENT
  Age: 53 Year
  Sex: Female

DRUGS (11)
  1. CYCLOPHOSPHAMIDE. [Concomitant]
     Active Substance: CYCLOPHOSPHAMIDE
     Indication: BREAST CANCER
     Dosage: 840 MILLIGRAM, QD (SINGLE)
     Dates: start: 20191127, end: 20191127
  2. CYCLOPHOSPHAMIDE. [Concomitant]
     Active Substance: CYCLOPHOSPHAMIDE
     Dosage: 840 MILLIGRAM, QD (SINGLE)
     Dates: start: 20191218, end: 20191218
  3. PEGFILGRASTIM [Suspect]
     Active Substance: PEGFILGRASTIM
     Dosage: 6 MILLIGRAM, QD (SINGLE)
     Route: 058
     Dates: start: 20200109, end: 20200109
  4. PEGFILGRASTIM [Suspect]
     Active Substance: PEGFILGRASTIM
     Indication: BREAST CANCER
     Dosage: 6 MILLIGRAM, QD (SINGLE)
     Route: 058
     Dates: start: 20191219, end: 20191219
  5. CYCLOPHOSPHAMIDE. [Concomitant]
     Active Substance: CYCLOPHOSPHAMIDE
     Dosage: 840 MILLIGRAM, QD (SINGLE)
     Dates: start: 20200129, end: 20200129
  6. DOXORUBICIN HYDROCHLORIDE. [Concomitant]
     Active Substance: DOXORUBICIN HYDROCHLORIDE
     Dosage: 84 MILLIGRAM, QD (SINGLE)
     Dates: start: 20191218, end: 20191218
  7. CYCLOPHOSPHAMIDE. [Concomitant]
     Active Substance: CYCLOPHOSPHAMIDE
     Dosage: 840 MILLIGRAM, QD (SINGLE)
     Dates: start: 20200108, end: 20200108
  8. PEGFILGRASTIM [Suspect]
     Active Substance: PEGFILGRASTIM
     Dosage: 6 MILLIGRAM, QD (SINGLE)
     Route: 058
     Dates: start: 20200130, end: 20200130
  9. DOXORUBICIN HYDROCHLORIDE. [Concomitant]
     Active Substance: DOXORUBICIN HYDROCHLORIDE
     Indication: BREAST CANCER
     Dosage: 84 MILLIGRAM, QD (SINGLE)
     Dates: start: 20191127, end: 20191127
  10. DOXORUBICIN HYDROCHLORIDE. [Concomitant]
     Active Substance: DOXORUBICIN HYDROCHLORIDE
     Dosage: 84 MILLIGRAM, QD (SINGLE)
     Dates: start: 20200129, end: 20200129
  11. DOXORUBICIN HYDROCHLORIDE. [Concomitant]
     Active Substance: DOXORUBICIN HYDROCHLORIDE
     Dosage: 84 MILLIGRAM, QD (SINGLE)
     Dates: start: 20200108, end: 20200108

REACTIONS (1)
  - Leukopenia [Recovered/Resolved]

NARRATIVE: CASE EVENT DATE: 20200205
